FAERS Safety Report 7723078-6 (Version None)
Quarter: 2011Q3

REPORT INFORMATION
  Report Type: 
  Country: None (occurrence: None)
  Receive Date: 20110901
  Receipt Date: 20110824
  Transmission Date: 20111222
  Serious: Yes (Death, Hospitalization, Other)
  Sender: FDA-Public Use
  Company Number: JP-CEPHALON-2011002108

PATIENT
  Sex: Male
  Weight: 55 kg

DRUGS (9)
  1. VOGLIBOSE [Concomitant]
  2. INSULIN HUMAN [Concomitant]
     Dates: start: 20110421, end: 20110426
  3. MAGNESIUM OXIDE [Concomitant]
  4. TREANDA [Suspect]
     Indication: MANTLE CELL LYMPHOMA
     Route: 042
     Dates: start: 20110107
  5. ALLOPURINOL [Concomitant]
  6. PIOGLITAZONE [Concomitant]
  7. SITAGLIPTIN PHOSPHATE [Concomitant]
  8. METFFORMIN HYDROCHLORIDE [Concomitant]
     Dates: start: 20110202
  9. GLIMEPIRIDE [Concomitant]

REACTIONS (12)
  - LYMPHOCYTE COUNT DECREASED [None]
  - INTERSTITIAL LUNG DISEASE [None]
  - BLOOD LACTATE DEHYDROGENASE INCREASED [None]
  - C-REACTIVE PROTEIN INCREASED [None]
  - NEUTROPHIL COUNT DECREASED [None]
  - ANAEMIA [None]
  - HYPOKALAEMIA [None]
  - DIABETES MELLITUS [None]
  - WHITE BLOOD CELL COUNT DECREASED [None]
  - PLATELET COUNT DECREASED [None]
  - HERPES ZOSTER [None]
  - MANTLE CELL LYMPHOMA [None]
